FAERS Safety Report 4731524-5 (Version None)
Quarter: 2005Q3

REPORT INFORMATION
  Report Type: 
  Country: None (occurrence: None)
  Receive Date: 20050721
  Receipt Date: 20050603
  Transmission Date: 20060218
  Serious: Yes (Other)
  Sender: FDA-Public Use
  Company Number: 2004044050

PATIENT
  Age: 46 Year
  Sex: Male
  Weight: 68.0396 kg

DRUGS (8)
  1. RELPAX [Suspect]
     Indication: MIGRAINE
     Dosage: (40 MG), ORAL
     Route: 048
     Dates: start: 20040601, end: 20040601
  2. NEURONTIN [Concomitant]
  3. ZOLOFT [Concomitant]
  4. VIOKASE (PANCRELIPASE) [Concomitant]
  5. NORVASC [Concomitant]
  6. MILK THISTLE (SILYMARIN) [Concomitant]
  7. THIAMINE (THIAMINE) [Concomitant]
  8. FOLIC ACID [Concomitant]

REACTIONS (5)
  - ABDOMINAL PAIN [None]
  - BACK PAIN [None]
  - CHEST PAIN [None]
  - DECREASED ACTIVITY [None]
  - MIGRAINE [None]
